FAERS Safety Report 13859622 (Version 1)
Quarter: 2017Q3

REPORT INFORMATION
  Report Type: Spontaneous
  Country: US (occurrence: US)
  Receive Date: 20170811
  Receipt Date: 20170811
  Transmission Date: 20171127
  Serious: Yes (Other)
  Sender: FDA-Public Use
  Company Number: US-BAYER-2017-147206

PATIENT
  Age: 86 Year
  Sex: Male
  Weight: 84.99 kg

DRUGS (1)
  1. MIRALAX [Suspect]
     Active Substance: POLYETHYLENE GLYCOL 3350
     Indication: GASTROINTESTINAL DISORDER
     Dosage: 17 G, QD
     Route: 048

REACTIONS (6)
  - Drug dependence [Unknown]
  - Expired product administered [None]
  - Constipation [Unknown]
  - Product use issue [Unknown]
  - Incorrect drug administration duration [Unknown]
  - Underdose [Unknown]
